FAERS Safety Report 7814283-9 (Version None)
Quarter: 2011Q4

REPORT INFORMATION
  Report Type: 
  Country: None (occurrence: None)
  Receive Date: 20111014
  Receipt Date: 20111010
  Transmission Date: 20120403
  Serious: Yes (Hospitalization)
  Sender: FDA-Public Use
  Company Number: KR-PFIZER INC-2011241466

PATIENT
  Age: 80 Year
  Sex: Male

DRUGS (3)
  1. HALOPERIDOL [Suspect]
     Indication: CHOREA
     Dosage: 1.5 MG, 1X/DAY
  2. ACETYLSALICYLIC ACID [Concomitant]
     Indication: ANGINA PECTORIS
     Dosage: 100 MG, UNK
  3. HALOPERIDOL [Suspect]
     Indication: BALLISMUS
     Dosage: 4.5 MG, 1X/DAY

REACTIONS (1)
  - CHOREA [None]
